FAERS Safety Report 7819566-4 (Version None)
Quarter: 2011Q4

REPORT INFORMATION
  Report Type: 
  Country: None (occurrence: None)
  Receive Date: 20111018
  Receipt Date: 20111006
  Transmission Date: 20120403
  Serious: Yes (Other)
  Sender: FDA-Public Use
  Company Number: GB-SANOFI-AVENTIS-2011SA065661

PATIENT
  Age: 68 Year
  Sex: Male

DRUGS (11)
  1. MULTAQ [Suspect]
     Route: 048
     Dates: start: 20110909, end: 20110923
  2. GLICLAZIDE [Concomitant]
     Route: 065
  3. SENNA [Concomitant]
     Route: 065
  4. METFORMIN HYDROCHLORIDE [Concomitant]
     Route: 065
  5. CODEINE SULFATE [Concomitant]
     Route: 048
  6. FLECAINIDE ACETATE [Concomitant]
     Route: 065
     Dates: end: 20110908
  7. ASPIRIN [Concomitant]
     Route: 065
  8. ACETAMINOPHEN [Concomitant]
     Route: 048
  9. PERINDOPRIL ERBUMINE [Concomitant]
     Indication: HYPERTENSION
     Route: 065
  10. DOXAZOSIN MESYLATE [Concomitant]
     Indication: HYPERTENSION
     Route: 065
  11. LANSOPRAZOLE [Concomitant]
     Route: 065

REACTIONS (1)
  - MUSCLE SPASMS [None]
